FAERS Safety Report 6841461-8 (Version None)
Quarter: 2010Q3

REPORT INFORMATION
  Report Type: 
  Country: None (occurrence: None)
  Receive Date: 20100714
  Receipt Date: 20070705
  Transmission Date: 20110219
  Serious: No
  Sender: FDA-Public Use
  Company Number: US-PFIZER INC-2007056794

PATIENT
  Sex: Female
  Weight: 63.1 kg

DRUGS (4)
  1. CHANTIX [Suspect]
     Indication: SMOKING CESSATION THERAPY
     Dates: start: 20070101
  2. ESTRADIOL [Concomitant]
  3. LEXAPRO [Concomitant]
  4. ACIPHEX [Concomitant]

REACTIONS (2)
  - PRURITUS [None]
  - URTICARIA [None]
